FAERS Safety Report 14889903 (Version 1)
Quarter: 2018Q2

REPORT INFORMATION
  Report Type: Spontaneous
  Country: TR (occurrence: TR)
  Receive Date: 20180514
  Receipt Date: 20180514
  Transmission Date: 20180711
  Serious: Yes (Other)
  Sender: FDA-Public Use
  Company Number: TR-TEVA-2018-TR-891373

PATIENT
  Sex: Female
  Weight: 70 kg

DRUGS (1)
  1. TETRADOX [Suspect]
     Active Substance: DOXYCYCLINE HYDROCHLORIDE
     Indication: ACNE
     Dosage: 100 MILLIGRAM DAILY; TETRADOX 100 MG CAPSULE
     Route: 048
     Dates: start: 20180416

REACTIONS (2)
  - Groin pain [Not Recovered/Not Resolved]
  - Renal pain [Not Recovered/Not Resolved]
